FAERS Safety Report 15240809 (Version 1)
Quarter: 2018Q3

REPORT INFORMATION
  Report Type: Spontaneous
  Country: US (occurrence: US)
  Receive Date: 20180711
  Receipt Date: 20180711
  Transmission Date: 20181010
  Serious: No
  Sender: FDA-Public Use
  Company Number: None

PATIENT
  Age: 53 Year
  Sex: Female

DRUGS (1)
  1. AUSTEDO [Suspect]
     Active Substance: DEUTETRABENAZINE
     Indication: DYSTONIA
     Route: 048
     Dates: start: 20180601

REACTIONS (5)
  - Dry mouth [None]
  - Mood altered [None]
  - Depression [None]
  - Vision blurred [None]
  - Liver disorder [None]

NARRATIVE: CASE EVENT DATE: 20180702
